FAERS Safety Report 19655765 (Version 4)
Quarter: 2022Q1

REPORT INFORMATION
  Report Type: Spontaneous
  Country: AU (occurrence: AU)
  Receive Date: 20210804
  Receipt Date: 20220207
  Transmission Date: 20220424
  Serious: Yes (Other)
  Sender: FDA-Public Use
  Company Number: NVSC2021AU173441

PATIENT
  Sex: Male

DRUGS (4)
  1. CYCLOSPORINE [Suspect]
     Active Substance: CYCLOSPORINE
     Indication: Chronic graft versus host disease
     Dosage: UNK
     Route: 065
  2. MYCOPHENOLATE MOFETIL [Suspect]
     Active Substance: MYCOPHENOLATE MOFETIL
     Indication: Chronic graft versus host disease
     Dosage: UNK
     Route: 065
  3. RITUXIMAB [Suspect]
     Active Substance: RITUXIMAB
     Indication: Chronic graft versus host disease
     Dosage: UNK UNK, BID (60 UNITS)
     Route: 065
  4. PREDNISOLONE [Suspect]
     Active Substance: PREDNISOLONE
     Indication: Chronic graft versus host disease
     Dosage: UNK
     Route: 065

REACTIONS (9)
  - Pancytopenia [Unknown]
  - Chronic graft versus host disease oral [Not Recovered/Not Resolved]
  - Chronic graft versus host disease in skin [Not Recovered/Not Resolved]
  - Chronic graft versus host disease in liver [Not Recovered/Not Resolved]
  - Disease progression [Not Recovered/Not Resolved]
  - Weight decreased [Unknown]
  - Myopathy [Unknown]
  - Microangiopathic haemolytic anaemia [Unknown]
  - Toxicity to various agents [Not Recovered/Not Resolved]
